FAERS Safety Report 5343609-3 (Version None)
Quarter: 2007Q2

REPORT INFORMATION
  Report Type: 
  Country: None (occurrence: None)
  Receive Date: 20070531
  Receipt Date: 20070516
  Transmission Date: 20071010
  Serious: Yes (Hospitalization)
  Sender: FDA-Public Use
  Company Number: 8024055

PATIENT
  Age: 41 Year
  Sex: Female

DRUGS (1)
  1. KEPPRA [Suspect]
     Indication: EPILEPSY
     Dosage: 1500 MG/D;

REACTIONS (9)
  - ABDOMINAL PAIN UPPER [None]
  - CONDITION AGGRAVATED [None]
  - DRUG EFFECT DECREASED [None]
  - GASTRIC DISORDER [None]
  - HALLUCINATION [None]
  - HEADACHE [None]
  - MALAISE [None]
  - PETIT MAL EPILEPSY [None]
  - SUICIDAL IDEATION [None]
